FAERS Safety Report 5757643-2 (Version None)
Quarter: 2008Q2

REPORT INFORMATION
  Report Type: 
  Country: None (occurrence: None)
  Receive Date: 20080603
  Receipt Date: 20080519
  Transmission Date: 20081010
  Serious: Yes (Other)
  Sender: FDA-Public Use
  Company Number: JP-GENENTECH-261950

PATIENT
  Sex: Female

DRUGS (3)
  1. HERCEPTIN [Suspect]
     Indication: BREAST CANCER METASTATIC
     Dosage: 4 MG/KG, UNKNOWN
     Route: 042
  2. HERCEPTIN [Suspect]
     Dosage: 2 MG/KG, 1/WEEK
     Route: 042
  3. XELODA [Suspect]
     Indication: BREAST CANCER METASTATIC
     Dosage: 828 MG/M2, BID
     Route: 048

REACTIONS (1)
  - HEPATIC FUNCTION ABNORMAL [None]
